FAERS Safety Report 25472527 (Version 2)
Quarter: 2025Q2

REPORT INFORMATION
  Report Type: Spontaneous
  Country: CA (occurrence: CA)
  Receive Date: 20250624
  Receipt Date: 20250625
  Transmission Date: 20250717
  Serious: Yes (Other)
  Sender: KARYOPHARM THERAPEUTICS
  Company Number: CA-KARYOPHARM-2024KPT001900

PATIENT

DRUGS (4)
  1. XPOVIO [Suspect]
     Active Substance: SELINEXOR
     Indication: Plasma cell myeloma
     Route: 048
  2. XPOVIO [Suspect]
     Active Substance: SELINEXOR
     Route: 048
     Dates: start: 202504
  3. DEXAMETHASONE [Concomitant]
     Active Substance: DEXAMETHASONE
  4. BORTEZOMIB [Concomitant]
     Active Substance: BORTEZOMIB

REACTIONS (2)
  - Plasma cell myeloma [Unknown]
  - Off label use [Unknown]
